FAERS Safety Report 7627538-8 (Version None)
Quarter: 2011Q3

REPORT INFORMATION
  Report Type: 
  Country: None (occurrence: None)
  Receive Date: 20110721
  Receipt Date: 20110712
  Transmission Date: 20111222
  Serious: Yes (Hospitalization)
  Sender: FDA-Public Use
  Company Number: US-PURDUE-USA-2011-0065431

PATIENT
  Sex: Male
  Weight: 81 kg

DRUGS (1)
  1. OXYCONTIN [Suspect]
     Indication: PAIN
     Dosage: 160 MG, Q12H
     Route: 048

REACTIONS (4)
  - VOMITING [None]
  - DIARRHOEA [None]
  - PANCREATITIS [None]
  - ABDOMINAL PAIN [None]
